FAERS Safety Report 4453219-8 (Version None)
Quarter: 2004Q3

REPORT INFORMATION
  Report Type: 
  Country: None (occurrence: None)
  Receive Date: 20040901
  Receipt Date: 20040629
  Transmission Date: 20050211
  Serious: Yes (Other)
  Sender: FDA-Public Use
  Company Number: US081914

PATIENT
  Sex: Female

DRUGS (1)
  1. ENBREL [Suspect]
     Indication: RHEUMATOID ARTHRITIS
     Dosage: 25 MG, 2 IN 1 WEEKS, SC
     Route: 058
     Dates: start: 19981201

REACTIONS (5)
  - GAIT DISTURBANCE [None]
  - MALAISE [None]
  - MULTIPLE SCLEROSIS [None]
  - VASCULITIS [None]
  - VERTIGO [None]
